FAERS Safety Report 23363292 (Version 1)
Quarter: 2024Q1

REPORT INFORMATION
  Report Type: Spontaneous
  Country: US (occurrence: US)
  Receive Date: 20240103
  Receipt Date: 20240103
  Transmission Date: 20240410
  Serious: Yes (Other)
  Sender: FDA-Public Use
  Company Number: US-PFIZER INC-202300453501

PATIENT
  Age: 85 Year
  Sex: Female
  Weight: 60.78 kg

DRUGS (1)
  1. PAXLOVID [Suspect]
     Active Substance: NIRMATRELVIR\RITONAVIR
     Indication: COVID-19 treatment
     Dosage: [NIRMATRELVIR 300 MG]/[RITONAVIR 100 MG]; 2X/DAY
     Route: 048

REACTIONS (5)
  - Angina pectoris [Recovered/Resolved]
  - Fatigue [Unknown]
  - Product size issue [Unknown]
  - Product use complaint [Unknown]
  - Wrong technique in product usage process [Unknown]
